FAERS Safety Report 6938625-1 (Version None)
Quarter: 2010Q3

REPORT INFORMATION
  Report Type: 
  Country: None (occurrence: None)
  Receive Date: 20100824
  Receipt Date: 20100816
  Transmission Date: 20110219
  Serious: Yes (Other)
  Sender: FDA-Public Use
  Company Number: US-B.I. PHARMACEUTICALS,INC./RIDGEFIELD-2010-BP-09261BP

PATIENT
  Age: 45 Year
  Sex: Female

DRUGS (4)
  1. DULCOLAX [Suspect]
     Indication: BOWEL PREPARATION
     Dosage: 15 MG
     Route: 048
     Dates: start: 20100701, end: 20100701
  2. DULCOLAX [Suspect]
     Indication: PREOPERATIVE CARE
     Dosage: 20 MG
     Route: 048
     Dates: start: 20100815, end: 20100815
  3. NEOMYCIN [Suspect]
     Indication: PREOPERATIVE CARE
     Route: 048
     Dates: start: 20100815
  4. ERYTHROMYCIN [Suspect]
     Indication: PREOPERATIVE CARE
     Route: 048
     Dates: start: 20100815

REACTIONS (2)
  - COLONIC POLYP [None]
  - NAUSEA [None]
